FAERS Safety Report 15051528 (Version 4)
Quarter: 2020Q3

REPORT INFORMATION
  Report Type: Report from Study
  Country: CN (occurrence: CN)
  Receive Date: 20180622
  Receipt Date: 20190415
  Transmission Date: 20201105
  Serious: Yes (Hospitalization)
  Sender: FDA-Public Use
  Company Number: CN-JNJFOC-20180617715

PATIENT
  Age: 63 Year
  Sex: Female
  Weight: 66 kg

DRUGS (2)
  1. PCI?32765 [Suspect]
     Active Substance: IBRUTINIB
     Route: 048
  2. PCI?32765 [Suspect]
     Active Substance: IBRUTINIB
     Indication: CHRONIC LYMPHOCYTIC LEUKAEMIA
     Dosage: MEDICAL KIT NUMBERS: 18821, 18822, 18823 AND 19060,19061
     Route: 048
     Dates: start: 20170609

REACTIONS (1)
  - Transient ischaemic attack [Recovered/Resolved]

NARRATIVE: CASE EVENT DATE: 20180529
